FAERS Safety Report 7680952-7 (Version None)
Quarter: 2011Q3

REPORT INFORMATION
  Report Type: 
  Country: None (occurrence: None)
  Receive Date: 20110812
  Receipt Date: 20110801
  Transmission Date: 20111222
  Serious: Yes (Hospitalization)
  Sender: FDA-Public Use
  Company Number: IT-ELI_LILLY_AND_COMPANY-IT201108000124

PATIENT
  Age: 77 Year
  Sex: Female
  Weight: 53 kg

DRUGS (9)
  1. CISPLATIN [Suspect]
     Indication: NON-SMALL CELL LUNG CANCER
     Dosage: 75 MG/M2, UNKNOWN
     Route: 042
     Dates: start: 20110609, end: 20110630
  2. DEXAMETHASONE SODIUM PHOSPHATE [Concomitant]
     Indication: PROPHYLAXIS OF NAUSEA AND VOMITING
     Dosage: 20 MG, UNK
     Dates: start: 20110609, end: 20110609
  3. NAVOBAN [Concomitant]
     Indication: PROPHYLAXIS OF NAUSEA AND VOMITING
     Dosage: 1 DF, UNK
     Dates: start: 20110609, end: 20110630
  4. DEXAMETHASONE SODIUM PHOSPHATE [Concomitant]
     Dosage: 20 MG, UNK
     Dates: start: 20110630, end: 20110630
  5. KEPPRA [Concomitant]
     Indication: CONVULSION
     Route: 048
  6. DEXAMETHASONE SODIUM PHOSPHATE [Concomitant]
     Dosage: 8 MG, UNK
     Dates: start: 20110616, end: 20110616
  7. VALSARTAN  AND HYDROCHLOROTHIAZIDE [Concomitant]
     Indication: HYPERTENSION
     Route: 048
  8. GEMCITABINE HYDROCHLORIDE [Suspect]
     Indication: NON-SMALL CELL LUNG CANCER
     Dosage: 1200 MG/M2, UNKNOWN
     Route: 042
     Dates: start: 20110609, end: 20110630
  9. SIMVASTATIN [Concomitant]
     Indication: HYPERCHOLESTEROLAEMIA
     Route: 048

REACTIONS (1)
  - HAEMORRHAGIC STROKE [None]
